FAERS Safety Report 7532289-4 (Version None)
Quarter: 2011Q2

REPORT INFORMATION
  Report Type: 
  Country: None (occurrence: None)
  Receive Date: 20110608
  Receipt Date: 20110531
  Transmission Date: 20111010
  Serious: Yes (Hospitalization)
  Sender: FDA-Public Use
  Company Number: KR-BRISTOL-MYERS SQUIBB COMPANY-15793003

PATIENT
  Age: 29 Year
  Sex: Male

DRUGS (1)
  1. WARFARIN SODIUM [Suspect]
     Indication: PULMONARY EMBOLISM
     Dosage: INTERRUPTED + RESTARTED WITH REDUCED DOSE OF 2MG DAILY AGAIN INTERRUPTED

REACTIONS (1)
  - PLEURAL EFFUSION [None]
